FAERS Safety Report 5975930-X (Version None)
Quarter: 2008Q4

REPORT INFORMATION
  Report Type: 
  Country: None (occurrence: None)
  Receive Date: 20081202
  Receipt Date: 20081127
  Transmission Date: 20090506
  Serious: Yes (Hospitalization)
  Sender: FDA-Public Use
  Company Number: DE-ROCHE-423713

PATIENT
  Sex: Female
  Weight: 110 kg

DRUGS (8)
  1. PEG-INTERFERON ALFA 2A (RO 25-8310) [Suspect]
     Route: 058
     Dates: start: 20050202
  2. RIBAVIRIN [Suspect]
     Route: 048
     Dates: start: 20050202
  3. PLACEBO [Suspect]
     Route: 048
     Dates: start: 20050120
  4. LISINOPRIL [Concomitant]
     Dates: start: 20050112
  5. LEVOTHYROXINE SODIUM [Concomitant]
     Dates: start: 20050112
  6. ALLOPURINOL [Concomitant]
     Dates: start: 20050112
  7. HYDROCHLOROTHIAZIDE [Concomitant]
     Dates: start: 20050112
  8. IBUPROFEN TABLETS [Concomitant]
     Dates: start: 20050222

REACTIONS (1)
  - ALVEOLITIS [None]
